FAERS Safety Report 13458215 (Version 1)
Quarter: 2017Q2

REPORT INFORMATION
  Report Type: Spontaneous
  Country: MA (occurrence: MA)
  Receive Date: 20170419
  Receipt Date: 20170419
  Transmission Date: 20170830
  Serious: Yes (Life-Threatening, Hospitalization, Other)
  Sender: FDA-Public Use
  Company Number: MA-ACCORD-050468

PATIENT
  Age: 35 Year
  Sex: Female

DRUGS (2)
  1. FOLINIC ACID [Concomitant]
     Active Substance: LEUCOVORIN
     Dosage: EITHER AS A CURATIVE TREATMENT ALONE OR AS PREPARATION FOR AN ENDOSCOPIC OR SURGICAL PROCEDURE
  2. METHOTREXATE. [Suspect]
     Active Substance: METHOTREXATE
     Indication: ECTOPIC PREGNANCY
     Dosage: 2 DOSES (REPEATED 48 HOURS LATER)
     Route: 030

REACTIONS (2)
  - Maternal exposure during pregnancy [Unknown]
  - Treatment failure [Unknown]
